FAERS Safety Report 7569261-4 (Version None)
Quarter: 2011Q2

REPORT INFORMATION
  Report Type: 
  Country: None (occurrence: None)
  Receive Date: 20110623
  Receipt Date: 20110617
  Transmission Date: 20111010
  Serious: Yes (Death, Other)
  Sender: FDA-Public Use
  Company Number: PHHY2011KR54729

PATIENT
  Age: 69 Month

DRUGS (5)
  1. CYCLOSPORINE [Suspect]
     Indication: STEM CELL TRANSPLANT
     Dosage: 150-300 NG/ML
  2. CYCLOPHOSPHAMIDE [Concomitant]
     Dosage: 60 MG/KG, UNK
  3. NEUPOGEN [Concomitant]
     Dosage: 5-10 MG/KG ONCE DAILY
  4. TOPOTECAN [Concomitant]
     Dosage: UNK
  5. FLUDARABINE PHOSPHATE [Concomitant]
     Dosage: 30 MG/M2, UNK

REACTIONS (2)
  - NEOPLASM MALIGNANT [None]
  - ACUTE GRAFT VERSUS HOST DISEASE [None]
